FAERS Safety Report 23820694 (Version 1)
Quarter: 2024Q2

REPORT INFORMATION
  Report Type: Spontaneous
  Country: US (occurrence: None)
  Receive Date: 20240503
  Receipt Date: 20240503
  Transmission Date: 20240715
  Serious: Yes (Hospitalization)
  Sender: FDA-Public Use
  Company Number: None

PATIENT
  Sex: Female

DRUGS (4)
  1. SILDENAFIL CITRATE [Suspect]
     Active Substance: SILDENAFIL CITRATE
     Indication: Pulmonary arterial hypertension
     Dosage: 10 MG TID PO?
     Route: 048
     Dates: start: 202304
  2. UPTRAVI (MONTH 2 TITR) [Concomitant]
  3. UPTRAVI (MNTH 1 TITR) [Concomitant]
  4. UPTRAVI [Concomitant]
     Active Substance: SELEXIPAG

REACTIONS (2)
  - Haematochezia [None]
  - Dyspnoea [None]
